FAERS Safety Report 23409125 (Version 1)
Quarter: 2024Q1

REPORT INFORMATION
  Report Type: Spontaneous
  Country: ES (occurrence: None)
  Receive Date: 20240117
  Receipt Date: 20240117
  Transmission Date: 20240410
  Serious: Yes (Hospitalization)
  Sender: FDA-Public Use
  Company Number: 2024A005735

PATIENT
  Age: 70 Year
  Sex: Female

DRUGS (8)
  1. ACALABRUTINIB [Suspect]
     Active Substance: ACALABRUTINIB
     Indication: Chronic lymphocytic leukaemia
     Route: 048
     Dates: start: 20231009, end: 20231128
  2. CALCIFEDIOL [Concomitant]
     Active Substance: CALCIFEDIOL
     Dosage: 1 CAPSULE EVERY 28 DAYS
     Route: 042
     Dates: start: 20231009
  3. FOLIC ACID [Concomitant]
     Active Substance: FOLIC ACID
     Dosage: 5 MG, ONCE A DAY
     Route: 048
     Dates: start: 20230629
  4. ACYCLOVIR [Concomitant]
     Active Substance: ACYCLOVIR
     Dosage: 800 MG, 1 A DAY
     Route: 048
     Dates: start: 20231009
  5. DULOXETINE [Concomitant]
     Active Substance: DULOXETINE
     Dosage: 60 MG, ONCE A DAY
     Route: 048
     Dates: start: 20230523
  6. BUDESONIDE [Concomitant]
     Active Substance: BUDESONIDE
     Dosage: 3 MG EVERY 8 H
     Route: 042
     Dates: start: 20231002
  7. LORAZEPAM [Concomitant]
     Active Substance: LORAZEPAM
     Dosage: OR 0.5 MG, TWICE A DAY
     Route: 042
     Dates: start: 20220324
  8. ENALAPRIL [Concomitant]
     Active Substance: ENALAPRIL
     Indication: Hypertension
     Dosage: 5 MG, ONCE A DAY
     Route: 042

REACTIONS (3)
  - Feeding intolerance [Recovering/Resolving]
  - Headache [Recovering/Resolving]
  - Vomiting [Recovering/Resolving]

NARRATIVE: CASE EVENT DATE: 20231114
